FAERS Safety Report 9373969 (Version 1)
Quarter: 2013Q2

REPORT INFORMATION
  Report Type: Spontaneous
  Country: US (occurrence: US)
  Receive Date: 20130628
  Receipt Date: 20130628
  Transmission Date: 20140414
  Serious: No
  Sender: FDA-Public Use
  Company Number: US-009507513-1306USA012542

PATIENT
  Sex: Female

DRUGS (1)
  1. NASONEX [Suspect]
     Indication: SINUSITIS
     Dosage: UNK, BID,  50 MICROGRAM/2 SPRAYS
     Route: 045

REACTIONS (4)
  - Sinusitis [Unknown]
  - Product container issue [Unknown]
  - Product quality issue [Unknown]
  - Drug dose omission [Unknown]
